FAERS Safety Report 8505872-7 (Version None)
Quarter: 2012Q3

REPORT INFORMATION
  Report Type: 
  Country: None (occurrence: None)
  Receive Date: 20120712
  Receipt Date: 20120702
  Transmission Date: 20120928
  Serious: Yes (Hospitalization, Other)
  Sender: FDA-Public Use
  Company Number: US-ACTELION-A-NJ2011-52452

PATIENT

DRUGS (22)
  1. CARDIZEM [Concomitant]
  2. XALATAN [Concomitant]
  3. ZINC SULFATE [Concomitant]
  4. TIKOSYN [Concomitant]
  5. MAGNESIUM OXIDE [Concomitant]
  6. NAPROSYN [Concomitant]
  7. ASCORBIC ACID [Concomitant]
  8. FERROUS SULFATE TAB [Concomitant]
  9. ETHACRYNIC ACID [Concomitant]
  10. BENADRYL [Concomitant]
  11. PREVACID [Concomitant]
  12. EPOPROSTENOL SODIUM [Suspect]
     Indication: PULMONARY ARTERIAL HYPERTENSION
     Dosage: 21.2 NG/KG, PER MIN
     Route: 041
     Dates: start: 20110323
  13. TRACLEER [Suspect]
     Indication: PULMONARY ARTERIAL HYPERTENSION
     Dosage: 62.5 MG, BID
     Route: 048
     Dates: start: 20020404
  14. ACYCLOVIR [Concomitant]
  15. IMODIUM [Concomitant]
  16. LACTOBACILLUS [Concomitant]
  17. OXYGEN [Concomitant]
  18. FOLIC ACID [Concomitant]
  19. ZOLOFT [Concomitant]
  20. SPIRONOLACTONE [Concomitant]
  21. MULTI-VITAMIN [Concomitant]
  22. COUMADIN [Concomitant]

REACTIONS (13)
  - PALPITATIONS [None]
  - DYSPNOEA [None]
  - HEART RATE INCREASED [None]
  - PNEUMONIA [None]
  - INTERNATIONAL NORMALISED RATIO INCREASED [None]
  - OEDEMA [None]
  - CARDIAC ABLATION [None]
  - CARDIAC FAILURE CONGESTIVE [None]
  - PULMONARY OEDEMA [None]
  - ATRIAL TACHYCARDIA [None]
  - IRON DEFICIENCY ANAEMIA [None]
  - CARDIOVERSION [None]
  - SINUSITIS [None]
